FAERS Safety Report 6167237-5 (Version None)
Quarter: 2009Q2

REPORT INFORMATION
  Report Type: 
  Country: None (occurrence: None)
  Receive Date: 20090424
  Receipt Date: 20090417
  Transmission Date: 20091009
  Serious: Yes (Other)
  Sender: FDA-Public Use
  Company Number: US-WYE-H09010409

PATIENT
  Age: 11 Year
  Sex: Male

DRUGS (4)
  1. TORISEL [Suspect]
     Indication: EPENDYMOMA
     Dosage: 75MG/M2 WEEKLY
     Route: 042
     Dates: start: 20090320
  2. BENADRYL [Concomitant]
     Dosage: UNKNOWN
     Route: 042
  3. ZOFRAN [Concomitant]
     Indication: VOMITING
     Dosage: UNKNOWN
     Route: 042
  4. ZOFRAN [Concomitant]
     Indication: PROPHYLAXIS

REACTIONS (1)
  - MIGRAINE [None]
